FAERS Safety Report 25723412 (Version 1)
Quarter: 2025Q3

REPORT INFORMATION
  Report Type: Spontaneous
  Country: EU (occurrence: EU)
  Receive Date: 20250825
  Receipt Date: 20250825
  Transmission Date: 20251020
  Serious: Yes (Hospitalization)
  Sender: MYLAN
  Company Number: None

PATIENT
  Age: 41 Year
  Sex: Female

DRUGS (4)
  1. BUSPIRONE [Suspect]
     Active Substance: BUSPIRONE HYDROCHLORIDE
     Indication: Borderline personality disorder
     Dosage: 30 MILLIGRAM, QD
     Dates: start: 20250703, end: 20250730
  2. LAMICTAL [Suspect]
     Active Substance: LAMOTRIGINE
     Indication: Borderline personality disorder
     Dosage: 25 MILLIGRAM, QD (DISPERSIBLE OR CHEWABLE TABLET)
     Dates: start: 20250703, end: 20250710
  3. LAMICTAL [Suspect]
     Active Substance: LAMOTRIGINE
     Dosage: 50 MILLIGRAM, QD (DISPERSIBLE OR CHEWABLE TABLET)
     Dates: start: 20250710, end: 20250730
  4. ZYBAN [Suspect]
     Active Substance: BUPROPION HYDROCHLORIDE
     Indication: Borderline personality disorder
     Dosage: 150 MILLIGRAM, QD
     Dates: start: 20250703, end: 20250730

REACTIONS (1)
  - Drug reaction with eosinophilia and systemic symptoms [Recovering/Resolving]

NARRATIVE: CASE EVENT DATE: 20250728
